FAERS Safety Report 9504520 (Version 1)
Quarter: 2013Q3

REPORT INFORMATION
  Report Type: Spontaneous
  Country: US (occurrence: US)
  Receive Date: 20130906
  Receipt Date: 20130906
  Transmission Date: 20140515
  Serious: Yes (Other)
  Sender: FDA-Public Use
  Company Number: GXBR2013US001659

PATIENT
  Age: 95 Year
  Sex: Male

DRUGS (1)
  1. PENICILLIN V POTASSIUM [Suspect]
     Dosage: UNK MG, UNK

REACTIONS (1)
  - Stevens-Johnson syndrome [Unknown]
